FAERS Safety Report 24625899 (Version 5)
Quarter: 2025Q3

REPORT INFORMATION
  Report Type: Spontaneous
  Country: US (occurrence: US)
  Receive Date: 20241115
  Receipt Date: 20250725
  Transmission Date: 20251020
  Serious: No
  Sender: PFIZER
  Company Number: US-PFIZER INC-202200650591

PATIENT
  Age: 68 Year
  Sex: Female
  Weight: 59.773 kg

DRUGS (4)
  1. LORBRENA [Suspect]
     Active Substance: LORLATINIB
     Indication: Lung adenocarcinoma
     Dosage: 100 MG, 1X/DAY
     Route: 048
  2. LORBRENA [Suspect]
     Active Substance: LORLATINIB
     Indication: Hypervolaemia
  3. LORBRENA [Suspect]
     Active Substance: LORLATINIB
     Indication: Lung adenocarcinoma
  4. LORBRENA [Suspect]
     Active Substance: LORLATINIB
     Indication: Cough

REACTIONS (1)
  - Iron deficiency [Unknown]

NARRATIVE: CASE EVENT DATE: 20240703
